FAERS Safety Report 7788149-7 (Version None)
Quarter: 2011Q3

REPORT INFORMATION
  Report Type: 
  Country: None (occurrence: None)
  Receive Date: 20110927
  Receipt Date: 20110919
  Transmission Date: 20111222
  Serious: Yes (Life-Threatening, Hospitalization, Congenital Anomaly, Other)
  Sender: FDA-Public Use
  Company Number: GER/GER/11/0021226

PATIENT
  Sex: Male
  Weight: 3.45 kg

DRUGS (4)
  1. SERTRALINE HYDROCHLORIDE [Suspect]
     Indication: PRODUCT USED FOR UNKNOWN INDICATION
     Dosage: 100-0-50, TRANSPLACENTAL
     Route: 064
     Dates: start: 20100512, end: 20110106
  2. THYRONAJOD (JODTHYROX) [Concomitant]
  3. FOL 400 (FOLIC ACID) [Concomitant]
  4. PROMETHAZINE NEURAXPHARM (PROMETHAZINE) [Suspect]
     Indication: PRODUCT USED FOR UNKNOWN INDICATION
     Dosage: 30-0-30, TRANSPLACENTAL
     Route: 064
     Dates: start: 20100327, end: 20110106

REACTIONS (5)
  - MATERNAL DRUGS AFFECTING FOETUS [None]
  - PLACENTA PRAEVIA [None]
  - POSTMATURE BABY [None]
  - NEONATAL RESPIRATORY DISTRESS SYNDROME [None]
  - FALLOT'S TETRALOGY [None]
